FAERS Safety Report 7360351-8 (Version None)
Quarter: 2011Q1

REPORT INFORMATION
  Report Type: 
  Country: None (occurrence: None)
  Receive Date: 20110318
  Receipt Date: 20110308
  Transmission Date: 20110831
  Serious: No
  Sender: FDA-Public Use
  Company Number: US-JNJFOC-20110304448

PATIENT
  Sex: Male

DRUGS (2)
  1. FENTANYL-100 [Suspect]
     Dosage: 100 PLUS 25 UG/HR PATCHES
     Route: 062
  2. FENTANYL-100 [Suspect]
     Indication: PAIN
     Dosage: 100 PLUS 25 UG/HR PATCHES
     Route: 062

REACTIONS (2)
  - DRUG DOSE OMISSION [None]
  - DRUG INEFFECTIVE [None]
